FAERS Safety Report 16642693 (Version 1)
Quarter: 2019Q3

REPORT INFORMATION
  Report Type: Spontaneous
  Country: US (occurrence: US)
  Receive Date: 20190729
  Receipt Date: 20190729
  Transmission Date: 20191004
  Serious: Yes (Other)
  Sender: FDA-Public Use
  Company Number: US-PFIZER INC-2019320832

PATIENT
  Age: 60 Year
  Sex: Male

DRUGS (5)
  1. PROSCAR [Concomitant]
     Active Substance: FINASTERIDE
     Dosage: UNK, QD
     Route: 065
  2. FUROSEMIDE. [Concomitant]
     Active Substance: FUROSEMIDE
     Dosage: 40 MILLIGRAM, QOD
     Route: 065
  3. HEPARIN SODIUM. [Suspect]
     Active Substance: HEPARIN SODIUM
     Dosage: UNK
     Route: 041
  4. METOPROLOL. [Concomitant]
     Active Substance: METOPROLOL
     Dosage: 50 MILLIGRAM, QD
     Route: 048
  5. ELIQUIS [Suspect]
     Active Substance: APIXABAN
     Indication: CEREBROVASCULAR ACCIDENT PROPHYLAXIS
     Dosage: 2.5 MILLIGRAM, BID
     Route: 048

REACTIONS (3)
  - Intentional product use issue [Unknown]
  - Off label use [Unknown]
  - Eye haematoma [Recovering/Resolving]

NARRATIVE: CASE EVENT DATE: 201907
